FAERS Safety Report 24366462 (Version 1)
Quarter: 2024Q3

REPORT INFORMATION
  Report Type: Report from Study
  Country: PR (occurrence: US)
  Receive Date: 20240926
  Receipt Date: 20240926
  Transmission Date: 20241017
  Serious: Yes (Hospitalization)
  Sender: EISAI
  Company Number: PR-Eisai-EC-2024-175254

PATIENT
  Age: 54 Year
  Sex: Female
  Weight: 59 kg

DRUGS (10)
  1. LENVIMA [Suspect]
     Active Substance: LENVATINIB
     Indication: Endometrial cancer
     Route: 048
     Dates: start: 20240530, end: 202406
  2. LENVIMA [Suspect]
     Active Substance: LENVATINIB
     Indication: Ovarian cancer
     Route: 048
     Dates: start: 2024
  3. CARBOPLATIN [Concomitant]
     Active Substance: CARBOPLATIN
     Dosage: DOSE AND FREQUENCY UNKNOWN
  4. OMEPRAZOLE [Concomitant]
     Active Substance: OMEPRAZOLE
     Dosage: DOSE AND FREQUENCY UNKNOWN
  5. PACLITAXEL [Concomitant]
     Active Substance: PACLITAXEL
     Dosage: DOSE AND FREQUENCY UNKNOWN
  6. AVASTIN [Concomitant]
     Active Substance: BEVACIZUMAB
     Dosage: DOSE AND FREQUENCY UNKNOWN
  7. FAMOTIDINE [Concomitant]
     Active Substance: FAMOTIDINE
     Dosage: DOSE AND FREQUENCY UNKNOWN
  8. ONCOPLEX [Concomitant]
     Dosage: DOSE AND FREQUENCY UNKNOWN
  9. DIATOMACEOUS EARTH [Concomitant]
     Dosage: DOSE AND FREQUENCY UNKNOWN
  10. KEYTRUDA [Concomitant]
     Active Substance: PEMBROLIZUMAB
     Dosage: DOSE AND FREQUENCY UNKNOWN

REACTIONS (2)
  - Syncope [Unknown]
  - Ascites [Unknown]

NARRATIVE: CASE EVENT DATE: 20240901
